FAERS Safety Report 8131501-0 (Version None)
Quarter: 2012Q1

REPORT INFORMATION
  Report Type: 
  Country: None (occurrence: None)
  Receive Date: 20120213
  Receipt Date: 20120213
  Transmission Date: 20120608
  Serious: Yes (Disabling)
  Sender: FDA-Public Use
  Company Number: CN-JNJFOC-20120203566

PATIENT
  Age: 50 Year
  Sex: Male

DRUGS (2)
  1. DURAGESIC-100 [Suspect]
     Route: 062
     Dates: end: 20120205
  2. DURAGESIC-100 [Suspect]
     Indication: CANCER PAIN
     Route: 062
     Dates: start: 20120202

REACTIONS (5)
  - HYPERSOMNIA [None]
  - VOMITING [None]
  - WRONG TECHNIQUE IN DRUG USAGE PROCESS [None]
  - ABASIA [None]
  - INAPPROPRIATE SCHEDULE OF DRUG ADMINISTRATION [None]
